FAERS Safety Report 19778470 (Version 1)
Quarter: 2021Q3

REPORT INFORMATION
  Report Type: Spontaneous
  Country: US (occurrence: US)
  Receive Date: 20210902
  Receipt Date: 20210902
  Transmission Date: 20211014
  Serious: Yes (Hospitalization)
  Sender: FDA-Public Use
  Company Number: None

PATIENT
  Age: 45 Year
  Sex: Female
  Weight: 96.75 kg

DRUGS (1)
  1. VANCOMYCIN [Suspect]
     Active Substance: VANCOMYCIN
     Indication: HAEMATOMA INFECTION
     Route: 042
     Dates: start: 20210722, end: 20210825

REACTIONS (2)
  - Blood creatinine increased [None]
  - Antibiotic level above therapeutic [None]

NARRATIVE: CASE EVENT DATE: 20210824
